FAERS Safety Report 8924448 (Version 1)
Quarter: 2012Q4

REPORT INFORMATION
  Report Type: 
  Country: NO (occurrence: NO)
  Receive Date: 20121126
  Receipt Date: 20121126
  Transmission Date: 20130627
  Serious: Yes (Other)
  Sender: FDA-Public Use
  Company Number: NO-PFIZER INC-2012294625

PATIENT
  Age: 37 Year
  Sex: Male

DRUGS (1)
  1. LYRICA [Suspect]
     Dosage: at least 900 mg daily
     Route: 048

REACTIONS (6)
  - Drug abuse [Recovering/Resolving]
  - Withdrawal syndrome [Recovering/Resolving]
  - Discomfort [Recovering/Resolving]
  - Nervousness [Recovering/Resolving]
  - Drug dependence [Recovering/Resolving]
  - Influenza like illness [Recovering/Resolving]
